FAERS Safety Report 10710558 (Version 1)
Quarter: 2015Q1

REPORT INFORMATION
  Report Type: Spontaneous
  Country: US (occurrence: None)
  Receive Date: 20150112
  Receipt Date: 20150112
  Transmission Date: 20150721
  Serious: Yes (Life-Threatening, Hospitalization, Other)
  Sender: FDA-Public Use
  Company Number: 144717

PATIENT
  Age: 79 Year
  Sex: Female
  Weight: 48.5 kg

DRUGS (3)
  1. ETOPOSIDE (ETOPOSIDE) [Suspect]
     Active Substance: ETOPOSIDE
     Indication: SMALL CELL LUNG CANCER
     Dosage: 1) (100 MG/M2,ON DAY 1-3)
     Route: 042
     Dates: start: 20101215
  2. CISPLATIN (CISPLATIN) [Suspect]
     Active Substance: CISPLATIN
     Indication: SMALL CELL LUNG CANCER
     Dosage: 75 MG/M2, ON DAY 1
     Dates: start: 20101215
  3. CIXUTUMUMAB [Suspect]
     Active Substance: CIXUTUMUMAB
     Indication: SMALL CELL LUNG CANCER
     Dosage: 6 MG/KG,ON DAYS 1, 8 AND 15
     Route: 042
     Dates: start: 20101215, end: 20110106

REACTIONS (10)
  - Asthenia [None]
  - Dyspnoea [None]
  - Fluid intake reduced [None]
  - Fatigue [None]
  - Dehydration [None]
  - Blood glucose increased [None]
  - Haemoglobin decreased [None]
  - Chronic obstructive pulmonary disease [None]
  - Urinary tract infection [None]
  - Neutrophil count decreased [None]

NARRATIVE: CASE EVENT DATE: 20110111
